FAERS Safety Report 23997284 (Version 1)
Quarter: 2024Q2

REPORT INFORMATION
  Report Type: Spontaneous
  Country: CN (occurrence: CN)
  Receive Date: 20240621
  Receipt Date: 20240621
  Transmission Date: 20240715
  Serious: Yes (Hospitalization)
  Sender: FDA-Public Use
  Company Number: CN-STRIDES ARCOLAB LIMITED-2024SP007180

PATIENT
  Age: 12 Year
  Sex: Male

DRUGS (6)
  1. ETOPOSIDE [Suspect]
     Active Substance: ETOPOSIDE
     Indication: Abdominal neoplasm
     Dosage: UNK
     Route: 065
  2. ETOPOSIDE [Suspect]
     Active Substance: ETOPOSIDE
     Indication: Lymphadenopathy
  3. ETOPOSIDE [Suspect]
     Active Substance: ETOPOSIDE
     Indication: Neoplasm malignant
  4. CISPLATIN [Suspect]
     Active Substance: CISPLATIN
     Indication: Abdominal neoplasm
     Dosage: UNK
     Route: 065
  5. CISPLATIN [Suspect]
     Active Substance: CISPLATIN
     Indication: Lymphadenopathy
  6. CISPLATIN [Suspect]
     Active Substance: CISPLATIN
     Indication: Neoplasm malignant

REACTIONS (3)
  - Oxygen saturation decreased [Unknown]
  - Dyspnoea [Unknown]
  - Off label use [Unknown]
